APPROVED DRUG PRODUCT: ARIPIPRAZOLE
Active Ingredient: ARIPIPRAZOLE
Strength: 300MG/VIAL
Dosage Form/Route: FOR SUSPENSION, EXTENDED RELEASE;INTRAMUSCULAR
Application: A216608 | Product #001
Applicant: MYLAN PHARMACEUTICALS INC
Approved: Dec 3, 2024 | RLD: No | RS: No | Type: DISCN